FAERS Safety Report 10022189 (Version 3)
Quarter: 2014Q2

REPORT INFORMATION
  Report Type: Report from Study
  Country: FR (occurrence: FR)
  Receive Date: 20140319
  Receipt Date: 20140415
  Transmission Date: 20141212
  Serious: Yes (Hospitalization)
  Sender: FDA-Public Use
  Company Number: FR-GLAXOSMITHKLINE-B0977346A

PATIENT
  Age: 64 Year
  Sex: Male
  Weight: 54 kg

DRUGS (8)
  1. PAZOPANIB [Suspect]
     Indication: THYROID NEOPLASM
     Dosage: 800MG PER DAY
     Dates: start: 20140305
  2. DEPAKINE [Concomitant]
     Indication: EPILEPSY
     Dosage: 750MG PER DAY
     Route: 048
     Dates: start: 1983
  3. LEVOTHYROX [Concomitant]
     Indication: HYPOTHYROIDISM
     Dosage: 150UG PER DAY
     Route: 048
     Dates: start: 20100512
  4. DAFALGAN [Concomitant]
     Indication: PAIN
  5. ACEBUTOLOL [Concomitant]
     Indication: TACHYCARDIA
     Dosage: 100MG PER DAY
     Route: 048
     Dates: start: 201302
  6. TAMSULOSIN HYDROCHLORIDE [Concomitant]
     Indication: PRODUCT USED FOR UNKNOWN INDICATION
     Dosage: .4MG PER DAY
     Route: 048
     Dates: start: 201302
  7. ESOMEPRAZOLE [Concomitant]
  8. PARACETAMOL [Concomitant]

REACTIONS (1)
  - Pyrexia [Recovered/Resolved]
